FAERS Safety Report 5457559-5 (Version None)
Quarter: 2007Q3

REPORT INFORMATION
  Report Type: 
  Country: None (occurrence: None)
  Receive Date: 20070918
  Receipt Date: 20070911
  Transmission Date: 20080115
  Serious: Yes (Hospitalization)
  Sender: FDA-Public Use
  Company Number: IT-ROXANE LABORATORIES, INC-2007-BP-20798RO

PATIENT
  Age: 53 Year
  Sex: Male

DRUGS (5)
  1. AZATHIOPRINE [Suspect]
     Indication: COLITIS ULCERATIVE
  2. PREDNISONE [Suspect]
     Indication: COLITIS ULCERATIVE
     Route: 048
  3. SYSTEMIC STEROIDS [Concomitant]
     Indication: COLITIS ULCERATIVE
  4. SULFASALAZINE [Concomitant]
     Indication: COLITIS ULCERATIVE
  5. 5-AMINOSALICYLIC ACID ENEMA [Concomitant]
     Indication: COLITIS ULCERATIVE
     Route: 054

REACTIONS (13)
  - ACUTE FEBRILE NEUTROPHILIC DERMATOSIS [None]
  - ANAEMIA [None]
  - ANTINEUTROPHIL CYTOPLASMIC ANTIBODY POSITIVE [None]
  - ASTHENIA [None]
  - BLOOD ALBUMIN DECREASED [None]
  - DIARRHOEA [None]
  - DISEASE RECURRENCE [None]
  - LEUKOCYTOSIS [None]
  - NEUTROPHILIA [None]
  - PYREXIA [None]
  - RASH [None]
  - RECTAL HAEMORRHAGE [None]
  - RED BLOOD CELL SEDIMENTATION RATE INCREASED [None]
